FAERS Safety Report 16173173 (Version 1)
Quarter: 2019Q2

REPORT INFORMATION
  Report Type: Spontaneous
  Country: IT (occurrence: IT)
  Receive Date: 20190409
  Receipt Date: 20190409
  Transmission Date: 20190711
  Serious: Yes (Hospitalization)
  Sender: FDA-Public Use
  Company Number: IT-SUN PHARMACEUTICAL INDUSTRIES LTD-2019RR-204372

PATIENT
  Age: 9 Year
  Sex: Female
  Weight: 26 kg

DRUGS (1)
  1. CLARITROMICINA RANBAXY 250 MG/5ML GRANULATO PER SOSPENSIONE ORALE [Suspect]
     Active Substance: CLARITHROMYCIN
     Indication: BRONCHITIS
     Dosage: 250 MILLIGRAM, PRN/AS NECESSARY
     Route: 048
     Dates: start: 20190227, end: 20190227

REACTIONS (4)
  - Abdominal pain [Recovering/Resolving]
  - Headache [Recovering/Resolving]
  - Anaphylactic reaction [Recovering/Resolving]
  - Dysphagia [Recovering/Resolving]

NARRATIVE: CASE EVENT DATE: 20190227
